FAERS Safety Report 5841936-4 (Version None)
Quarter: 2008Q3

REPORT INFORMATION
  Report Type: 
  Country: None (occurrence: None)
  Receive Date: 20080812
  Receipt Date: 20020227
  Transmission Date: 20090109
  Serious: No
  Sender: FDA-Public Use
  Company Number: US-MERCK-01060089M

PATIENT
  Age: 32 Year
  Sex: Female

DRUGS (6)
  1. SINGULAIR [Suspect]
     Indication: ASTHMA
     Route: 048
  2. INSULIN [Concomitant]
     Indication: DIABETES MELLITUS
     Route: 065
  3. THEOPHYLLINE [Concomitant]
     Route: 065
  4. FLOVENT [Concomitant]
  5. SEREVENT [Concomitant]
  6. ALBUTEROL [Concomitant]

REACTIONS (4)
  - ASTHMA [None]
  - DRUG EXPOSURE DURING PREGNANCY [None]
  - HYPERGLYCAEMIA [None]
  - OVARIAN CYST [None]
